FAERS Safety Report 6865528-3 (Version None)
Quarter: 2010Q3

REPORT INFORMATION
  Report Type: 
  Country: None (occurrence: None)
  Receive Date: 20100721
  Receipt Date: 20080423
  Transmission Date: 20110219
  Serious: Yes (Other)
  Sender: FDA-Public Use
  Company Number: US-PFIZER INC-2008037324

PATIENT
  Sex: Male
  Weight: 93 kg

DRUGS (6)
  1. CHANTIX [Suspect]
     Indication: SMOKING CESSATION THERAPY
     Dates: start: 20080414, end: 20080423
  2. ATENOLOL [Concomitant]
  3. LIPITOR [Concomitant]
  4. KLOR-CON [Concomitant]
  5. HYDROCHLOROTHIAZIDE [Concomitant]
  6. ACETYLSALICYLIC ACID [Concomitant]

REACTIONS (3)
  - AGGRESSION [None]
  - DYSGEUSIA [None]
  - SUICIDAL IDEATION [None]
